FAERS Safety Report 6386410-4 (Version None)
Quarter: 2009Q3

REPORT INFORMATION
  Report Type: 
  Country: None (occurrence: None)
  Receive Date: 20090930
  Receipt Date: 20090930
  Transmission Date: 20100115
  Serious: No
  Sender: FDA-Public Use
  Company Number: None

PATIENT
  Sex: Male
  Weight: 81.6475 kg

DRUGS (2)
  1. AMLODIPINE BESYLATE [Suspect]
     Indication: HYPERTENSION
     Dosage: 1 DAILY
     Dates: start: 20090806, end: 20090810
  2. AMLODIPINE BESYLATE [Suspect]
     Indication: HYPERTENSION
     Dosage: 1 DAILY
     Dates: start: 20090927, end: 20090929

REACTIONS (3)
  - DIZZINESS [None]
  - NAUSEA [None]
  - PRODUCT SUBSTITUTION ISSUE [None]
